FAERS Safety Report 24970555 (Version 1)
Quarter: 2025Q1

REPORT INFORMATION
  Report Type: Spontaneous
  Country: FR (occurrence: FR)
  Receive Date: 20250214
  Receipt Date: 20250214
  Transmission Date: 20250408
  Serious: Yes (Other)
  Sender: AUROBINDO
  Company Number: FR-AUROBINDO-AUR-APL-2025-008256

PATIENT
  Age: 41 Year
  Sex: Female

DRUGS (2)
  1. METRONIDAZOLE [Suspect]
     Active Substance: METRONIDAZOLE
     Indication: Odynophagia
     Route: 065
  2. TRAMADOL [Suspect]
     Active Substance: TRAMADOL
     Indication: Pain
     Route: 065

REACTIONS (5)
  - Porphyria acute [Recovering/Resolving]
  - Neuropathy peripheral [Recovering/Resolving]
  - Acute motor axonal neuropathy [Recovering/Resolving]
  - Small fibre neuropathy [Recovering/Resolving]
  - Neuralgic amyotrophy [Recovering/Resolving]
